FAERS Safety Report 13090182 (Version 1)
Quarter: 2017Q1

REPORT INFORMATION
  Report Type: Report from Study
  Country: FR (occurrence: FR)
  Receive Date: 20170105
  Receipt Date: 20170105
  Transmission Date: 20170428
  Serious: Yes (Other)
  Sender: FDA-Public Use
  Company Number: FR-BEH-2017076797

PATIENT
  Age: 60 Year
  Sex: Female
  Weight: 84 kg

DRUGS (2)
  1. HIZENTRA [Suspect]
     Active Substance: HUMAN IMMUNOGLOBULIN G
     Indication: SECONDARY IMMUNODEFICIENCY
     Dosage: 7.000 G/KG/INJECTION, EVERY 7 DAYS
     Route: 058
  2. HIZENTRA [Suspect]
     Active Substance: HUMAN IMMUNOGLOBULIN G
     Indication: CHRONIC LYMPHOCYTIC LEUKAEMIA

REACTIONS (5)
  - Headache [Not Recovered/Not Resolved]
  - Upper respiratory tract infection [Unknown]
  - Pain [Recovered/Resolved with Sequelae]
  - Lung infection [Unknown]
  - Pruritus [Not Recovered/Not Resolved]

NARRATIVE: CASE EVENT DATE: 201207
